FAERS Safety Report 21255047 (Version 1)
Quarter: 2022Q3

REPORT INFORMATION
  Report Type: Spontaneous
  Country: US (occurrence: None)
  Receive Date: 20220824
  Receipt Date: 20220824
  Transmission Date: 20221027
  Serious: Yes (Hospitalization)
  Sender: FDA-Public Use
  Company Number: None

PATIENT
  Sex: Male

DRUGS (10)
  1. DROXIDOPA [Suspect]
     Active Substance: DROXIDOPA
     Indication: Orthostatic hypotension
     Dosage: TAKE 2 CAPSULES BY MOUTH 2 TIMES A DAY. ADMINISTER LAST DAILY DOSE 3 HOURS BEFORE BEDTIME WITH HEAD
     Route: 048
     Dates: start: 20220203
  2. DROXIDOPA [Suspect]
     Active Substance: DROXIDOPA
     Dosage: FREQUENCY : AS DIRECTED;?
     Route: 048
  3. ASPIRIN [Concomitant]
     Active Substance: ASPIRIN
  4. ATORVASTATIN [Concomitant]
     Active Substance: ATORVASTATIN
  5. CARVEDILOL [Concomitant]
     Active Substance: CARVEDILOL
  6. FLUDROCORTISONE [Concomitant]
     Active Substance: FLUDROCORTISONE
  7. LEVOTHYROXINE [Concomitant]
     Active Substance: LEVOTHYROXINE
  8. MESTINON [Concomitant]
     Active Substance: PYRIDOSTIGMINE BROMIDE
  9. MIDODRINE [Concomitant]
     Active Substance: MIDODRINE
  10. PERIDEX SOL [Concomitant]

REACTIONS (2)
  - COVID-19 [None]
  - Therapy interrupted [None]
